FAERS Safety Report 16255566 (Version 2)
Quarter: 2019Q2

REPORT INFORMATION
  Report Type: Spontaneous
  Country: US (occurrence: US)
  Receive Date: 20190430
  Receipt Date: 20190430
  Transmission Date: 20190711
  Serious: No
  Sender: FDA-Public Use
  Company Number: US-BAUSCH-BL-2018-005732

PATIENT
  Sex: Male
  Weight: 70.37 kg

DRUGS (1)
  1. ZYCLARA [Suspect]
     Active Substance: IMIQUIMOD
     Indication: ACTINIC KERATOSIS
     Dosage: ONCE DAILY TO THE FOREHEAD AND FACE
     Route: 061
     Dates: start: 20180223

REACTIONS (3)
  - Adverse reaction [Unknown]
  - Drug ineffective [Unknown]
  - Application site erythema [Unknown]

NARRATIVE: CASE EVENT DATE: 2018
